FAERS Safety Report 23492517 (Version 1)
Quarter: 2024Q1

REPORT INFORMATION
  Report Type: Spontaneous
  Country: CN (occurrence: CN)
  Receive Date: 20240207
  Receipt Date: 20240207
  Transmission Date: 20240409
  Serious: Yes (Hospitalization)
  Sender: FDA-Public Use
  Company Number: None

PATIENT
  Age: 55 Year
  Sex: Female
  Weight: 44 kg

DRUGS (9)
  1. CYCLOPHOSPHAMIDE [Suspect]
     Active Substance: CYCLOPHOSPHAMIDE
     Indication: Targeted cancer therapy
     Dosage: 1G, ONE TIME IN ONE DAY, DILUTED WITH 500ML OF 0.9% SODIUM CHLORIDE
     Route: 041
     Dates: start: 20231213, end: 20231213
  2. CYCLOPHOSPHAMIDE [Suspect]
     Active Substance: CYCLOPHOSPHAMIDE
     Indication: Diffuse large B-cell lymphoma stage III
  3. SODIUM CHLORIDE [Suspect]
     Active Substance: SODIUM CHLORIDE
     Indication: Medication dilution
     Dosage: (0.9%) 500ML, ONE TIME IN ONE DAY, USED TO DILUTE 1G OF CYCLOPHOSPHAMIDE
     Route: 041
     Dates: start: 20231213, end: 20231213
  4. SODIUM CHLORIDE [Suspect]
     Active Substance: SODIUM CHLORIDE
     Dosage: (0.9%) 100ML, ONE TIME IN ONE DAY, USED TO DILUTE 2MG OF VINCRISTINE SULFATE
     Route: 041
     Dates: start: 20231213, end: 20231213
  5. DEXTROSE [Suspect]
     Active Substance: DEXTROSE\DEXTROSE MONOHYDRATE
     Indication: Medication dilution
     Dosage: (5%) 250ML, ONE TIME IN ONE DAY, USED TO DILUTE 70MG OF PIRARUBICIN HYDROCHLORIDE
     Route: 041
     Dates: start: 20231213, end: 20231213
  6. PIRARUBICIN HYDROCHLORIDE [Suspect]
     Active Substance: PIRARUBICIN HYDROCHLORIDE
     Indication: Targeted cancer therapy
     Dosage: 70MG, ONE TIME IN ONE DAY, DILUTED WITH 250ML OF 5% GLUCOSE
     Route: 041
     Dates: start: 20231213, end: 20231213
  7. PIRARUBICIN HYDROCHLORIDE [Suspect]
     Active Substance: PIRARUBICIN HYDROCHLORIDE
     Indication: Diffuse large B-cell lymphoma stage III
  8. VINCRISTINE SULFATE [Suspect]
     Active Substance: VINCRISTINE SULFATE
     Indication: Targeted cancer therapy
     Dosage: 2MG, ONE TIME IN ONE DAY, DILUTED WITH 100ML OF 0.9% SODIUM CHLORIDE
     Route: 041
     Dates: start: 20231213, end: 20231213
  9. VINCRISTINE SULFATE [Suspect]
     Active Substance: VINCRISTINE SULFATE
     Indication: Diffuse large B-cell lymphoma stage III

REACTIONS (2)
  - White blood cell count decreased [Recovering/Resolving]
  - Neutrophil count decreased [Recovering/Resolving]

NARRATIVE: CASE EVENT DATE: 20240101
